FAERS Safety Report 9009334 (Version 2)
Quarter: 2013Q1

REPORT INFORMATION
  Report Type: Spontaneous
  Country: US (occurrence: US)
  Receive Date: 20130111
  Receipt Date: 20130219
  Transmission Date: 20140127
  Serious: Yes (Other)
  Sender: FDA-Public Use
  Company Number: US-FRI-1000041505

PATIENT
  Age: 34 Year
  Sex: Female

DRUGS (9)
  1. VIIBRYD [Suspect]
     Indication: DEPRESSION
     Dosage: 10 MG
     Route: 048
     Dates: start: 20121120, end: 20121126
  2. VIIBRYD [Suspect]
     Dosage: 20 MG
     Route: 048
     Dates: start: 20121127, end: 20121203
  3. VIIBRYD [Suspect]
     Indication: DEPRESSION
     Dosage: 40 MG
     Route: 048
     Dates: start: 20121204, end: 201301
  4. KLONOPIN [Concomitant]
     Indication: PANIC ATTACK
     Dosage: 6 MG
     Route: 048
  5. KLONOPIN [Concomitant]
     Indication: ANXIETY
  6. XANAX [Concomitant]
     Indication: PANIC ATTACK
     Dosage: 6 MG
     Route: 048
  7. XANAX [Concomitant]
     Indication: ANXIETY
  8. OMEPRAZOLE [Concomitant]
     Indication: DYSPEPSIA
  9. IBUPROFEN [Concomitant]
     Dosage: 800 MG AS NEEDED
     Route: 048

REACTIONS (3)
  - Haematochezia [Recovered/Resolved]
  - Diarrhoea [Not Recovered/Not Resolved]
  - Muscle spasms [Recovered/Resolved]
